FAERS Safety Report 5694891-4 (Version None)
Quarter: 2008Q2

REPORT INFORMATION
  Report Type: 
  Country: None (occurrence: None)
  Receive Date: 20080404
  Receipt Date: 20080325
  Transmission Date: 20081010
  Serious: Yes (Other)
  Sender: FDA-Public Use
  Company Number: PHBS2008US03640

PATIENT
  Age: 39 Year
  Sex: Female

DRUGS (9)
  1. BACLOFEN [Suspect]
     Indication: DYSTONIA
     Route: 037
  2. BACLOFEN [Suspect]
     Dosage: 1330 UG / D
     Route: 037
  3. BACLOFEN [Suspect]
     Dosage: DOWNTITRATED TO 555 UG/D
     Route: 037
  4. GABAPENTIN [Concomitant]
     Indication: DYSTONIA
     Route: 048
  5. TIZANIDINE HCL [Concomitant]
     Indication: DYSTONIA
     Route: 048
  6. BOTULINUM TOXIN [Concomitant]
     Indication: DYSTONIA
  7. CITALOPRAM HYDROBROMIDE [Concomitant]
     Indication: DEPRESSION
  8. ISOSORBIDE DINITRATE [Concomitant]
  9. BACLOFEN [Suspect]
     Route: 048

REACTIONS (9)
  - ANTEROGRADE AMNESIA [None]
  - CHEST PAIN [None]
  - DISSOCIATIVE DISORDER [None]
  - FATIGUE [None]
  - GLOBAL AMNESIA [None]
  - HYPOTENSION [None]
  - RETROGRADE AMNESIA [None]
  - STRESS [None]
  - URINARY INCONTINENCE [None]
